FAERS Safety Report 5122165-9 (Version None)
Quarter: 2006Q4

REPORT INFORMATION
  Report Type: 
  Country: None (occurrence: None)
  Receive Date: 20061003
  Receipt Date: 20060905
  Transmission Date: 20070319
  Serious: Yes (Death, Other)
  Sender: FDA-Public Use
  Company Number: 2006SP001249

PATIENT
  Age: 21 Year
  Sex: Male

DRUGS (3)
  1. RIBAVIRIN [Suspect]
     Indication: HEPATITIS C
  2. PEG-INTRON [Suspect]
     Indication: HEPATITIS C
  3. INTERKEUKIN -11 [Suspect]
     Indication: THROMBOCYTOPENIA

REACTIONS (10)
  - ABNORMAL BEHAVIOUR [None]
  - ANAEMIA [None]
  - CARDIAC FAILURE [None]
  - ENCEPHALOPATHY [None]
  - GENERAL PHYSICAL HEALTH DETERIORATION [None]
  - HAEMOGLOBIN DECREASED [None]
  - INFECTION [None]
  - MULTI-ORGAN FAILURE [None]
  - NEUTROPENIA [None]
  - THROMBOCYTOPENIA [None]
